FAERS Safety Report 22008363 (Version 1)
Quarter: 2023Q1

REPORT INFORMATION
  Report Type: Spontaneous
  Country: GB (occurrence: GB)
  Receive Date: 20230219
  Receipt Date: 20230219
  Transmission Date: 20230417
  Serious: Yes (Hospitalization)
  Sender: FDA-Public Use
  Company Number: GB-MHRA-TPP25855709C1894493YC1676116702433

PATIENT
  Age: 32 Year
  Sex: Female
  Weight: 62 kg

DRUGS (2)
  1. IBUPROFEN [Suspect]
     Active Substance: IBUPROFEN
     Indication: Ill-defined disorder
     Dosage: UNK
     Route: 065
     Dates: start: 20221116
  2. MOMETASONE [Concomitant]
     Active Substance: MOMETASONE
     Indication: Ill-defined disorder
     Dosage: UNK (TWO SPRAYS DAILY TO BOTH NOSTRILS)
     Route: 065
     Dates: start: 20221116, end: 20221123

REACTIONS (1)
  - Eye swelling [Recovered/Resolved]

NARRATIVE: CASE EVENT DATE: 20221116
